FAERS Safety Report 5717256-5 (Version None)
Quarter: 2008Q2

REPORT INFORMATION
  Report Type: 
  Country: None (occurrence: None)
  Receive Date: 20080424
  Receipt Date: 20080414
  Transmission Date: 20081010
  Serious: Yes (Other)
  Sender: FDA-Public Use
  Company Number: PHHY2008JP05845

PATIENT
  Age: 24 Year
  Sex: Female
  Weight: 46 kg

DRUGS (8)
  1. SIMULECT [Suspect]
     Indication: RENAL TRANSPLANT
     Dosage: 20 MG DAILY
     Route: 042
     Dates: start: 20070307, end: 20070307
  2. SIMULECT [Suspect]
     Dosage: 20 MG  DAILY
     Route: 042
     Dates: start: 20070311, end: 20070311
  3. CELLCEPT [Concomitant]
     Indication: RENAL TRANSPLANT
     Dosage: 1500 MG DAILY
     Route: 048
     Dates: start: 20070209, end: 20070910
  4. PROGRAF [Suspect]
     Indication: RENAL TRANSPLANT
     Dosage: 4 MG DAILY
     Route: 048
     Dates: start: 20070225, end: 20070310
  5. PROGRAF [Suspect]
     Dosage: 2.5 MG, UNK
     Dates: start: 20070307, end: 20070307
  6. PREDONINE [Concomitant]
     Indication: RENAL TRANSPLANT
     Dosage: 50 MG, UNK
     Route: 048
     Dates: start: 20070225
  7. SOL-MELCORT [Concomitant]
     Indication: RENAL TRANSPLANT
     Dosage: 250 MG, UNK
     Route: 042
     Dates: start: 20070307, end: 20070307
  8. RITUXAN [Concomitant]
     Indication: RENAL TRANSPLANT
     Dosage: 200 MG, UNK
     Route: 042
     Dates: start: 20070314, end: 20070315

REACTIONS (2)
  - KIDNEY TRANSPLANT REJECTION [None]
  - TOXIC ENCEPHALOPATHY [None]
